FAERS Safety Report 12341908 (Version 1)
Quarter: 2016Q2

REPORT INFORMATION
  Report Type: Spontaneous
  Country: US (occurrence: US)
  Receive Date: 20160506
  Receipt Date: 20160506
  Transmission Date: 20160815
  Serious: No
  Sender: FDA-Public Use
  Company Number: US-BAYER-2016-087075

PATIENT
  Age: 74 Year
  Sex: Female
  Weight: 49.89 kg

DRUGS (2)
  1. DULCOLAX (DOCUSATE SODIUM) [Concomitant]
     Active Substance: DOCUSATE SODIUM
  2. MIRALAX [Suspect]
     Active Substance: POLYETHYLENE GLYCOL 3350
     Indication: COLONOSCOPY
     Dosage: UNK, FOUR TIMES ON THE SAME DAY
     Route: 048
     Dates: start: 20160505, end: 20160505

REACTIONS (1)
  - Off label use [None]

NARRATIVE: CASE EVENT DATE: 20160505
